FAERS Safety Report 4313768-X (Version None)
Quarter: 2004Q1

REPORT INFORMATION
  Report Type: 
  Country: None (occurrence: None)
  Receive Date: 20040305
  Receipt Date: 20040224
  Transmission Date: 20041129
  Serious: Yes (Hospitalization)
  Sender: FDA-Public Use
  Company Number: HQ3329818JUL2002

PATIENT
  Age: 36 Year
  Sex: Female
  Weight: 128.94 kg

DRUGS (5)
  1. TRIPHASIL-28 [Suspect]
     Indication: CONTRACEPTION
     Dosage: 1 TABLET 1X PER 1 DAY, ORAL
     Route: 048
     Dates: start: 19900301, end: 19910301
  2. TRIPHASIL-28 [Suspect]
     Indication: CONTRACEPTION
     Dosage: 1 TABLET 1X PER 1 DAY, ORAL
     Route: 048
     Dates: start: 19930301, end: 19980901
  3. LO/OVRAL [Suspect]
     Indication: CONTRACEPTION
     Dosage: ORAL
     Route: 048
  4. ORTHO-NOVUM 1/35 [Suspect]
     Indication: CONTRACEPTION
  5. ORTHO-NOVUM 7/7/7-28 [Suspect]
     Indication: CONTRACEPTION
     Dates: end: 19930301

REACTIONS (46)
  - ABDOMINAL PAIN [None]
  - ACTIVATED PARTIAL THROMBOPLASTIN TIME PROLONGED [None]
  - ANAEMIA [None]
  - ANTI-HBC IGG ANTIBODY POSITIVE [None]
  - ANTITHROMBIN III DEFICIENCY [None]
  - ARTERIOVENOUS MALFORMATION [None]
  - BACK PAIN [None]
  - BILE DUCT STENOSIS [None]
  - BILOMA [None]
  - CARDIOLIPIN ANTIBODY POSITIVE [None]
  - CARDIOMEGALY [None]
  - DIPHTHERIA [None]
  - DYSPHAGIA [None]
  - EROSIVE OESOPHAGITIS [None]
  - ERYTHEMA [None]
  - EXTRAVASATION [None]
  - FLANK PAIN [None]
  - GALLBLADDER DISORDER [None]
  - GASTRITIS [None]
  - HAEMATOCRIT DECREASED [None]
  - HAEMOGLOBIN DECREASED [None]
  - HAEMORRHAGE [None]
  - HEPATIC CIRRHOSIS [None]
  - HEPATIC CONGESTION [None]
  - HEPATIC FIBROSIS [None]
  - HEPATIC INFARCTION [None]
  - HEPATIC NECROSIS [None]
  - HEPATIC NEOPLASM [None]
  - HEPATIC STEATOSIS [None]
  - HEPATOMEGALY [None]
  - HIATUS HERNIA [None]
  - HYPERCOAGULATION [None]
  - INFECTION [None]
  - LIVER ABSCESS [None]
  - MUCOUS MEMBRANE DISORDER [None]
  - NAUSEA [None]
  - PLEURAL EFFUSION [None]
  - PROTEIN C DECREASED [None]
  - PROTEIN S DECREASED [None]
  - PROTHROMBIN TIME PROLONGED [None]
  - PSEUDOMONAS INFECTION [None]
  - PYREXIA [None]
  - RED BLOOD CELL SEDIMENTATION RATE INCREASED [None]
  - SERUM FERRITIN DECREASED [None]
  - STAPHYLOCOCCAL INFECTION [None]
  - VOMITING [None]
